FAERS Safety Report 17062860 (Version 2)
Quarter: 2019Q4

REPORT INFORMATION
  Report Type: Spontaneous
  Country: FR (occurrence: FR)
  Receive Date: 20191122
  Receipt Date: 20191219
  Transmission Date: 20200122
  Serious: Yes (Hospitalization, Other)
  Sender: FDA-Public Use
  Company Number: FR-BAXTER-2019BAX023787

PATIENT
  Age: 40 Year
  Sex: Female

DRUGS (6)
  1. VINCRISTINE [Suspect]
     Active Substance: VINCRISTINE
     Indication: B-CELL TYPE ACUTE LEUKAEMIA
     Dosage: REPEATED EVERY 7-14 DAYS
     Route: 065
  2. VINCRISTINE [Suspect]
     Active Substance: VINCRISTINE
     Dosage: D1, REPEATED EVERY 7-14 DAYS
     Route: 065
  3. PREDNISONE PROPHASE [Concomitant]
     Indication: PRODUCT USED FOR UNKNOWN INDICATION
     Route: 065
  4. DOXIL [Suspect]
     Active Substance: DOXORUBICIN HYDROCHLORIDE
     Indication: B-CELL TYPE ACUTE LEUKAEMIA
     Dosage: D1, REPEATED EVERY 7-14 DAYS
     Route: 065
  5. ENDOXAN 1000 MG, POUDRE POUR SOLUTIONINJECTABLE [Suspect]
     Active Substance: CYCLOPHOSPHAMIDE
     Indication: B-CELL TYPE ACUTE LEUKAEMIA
     Dosage: D1, REPEATED EVERY 7-14 DAYS
     Route: 065
  6. PREDNISONE. [Suspect]
     Active Substance: PREDNISONE
     Indication: B-CELL TYPE ACUTE LEUKAEMIA
     Dosage: D1 TO D5, REPEATED EVERY 7-14 DAYS
     Route: 065

REACTIONS (7)
  - Neutropenia [Unknown]
  - Thrombocytopenia [Unknown]
  - Febrile neutropenia [Unknown]
  - Pulmonary embolism [Unknown]
  - Anaemia [Unknown]
  - Cytopenia [Unknown]
  - Hepatitis cholestatic [Unknown]
